FAERS Safety Report 6220231-8 (Version None)
Quarter: 2009Q2

REPORT INFORMATION
  Report Type: 
  Country: None (occurrence: None)
  Receive Date: 20090609
  Receipt Date: 20090526
  Transmission Date: 20091009
  Serious: Yes (Other)
  Sender: FDA-Public Use
  Company Number: US-ELI_LILLY_AND_COMPANY-US200905005078

PATIENT
  Sex: Male

DRUGS (5)
  1. CYMBALTA [Suspect]
     Indication: DEPRESSION
     Dosage: 30 MG, DAILY (1/D)
     Dates: start: 20090501, end: 20090501
  2. CYMBALTA [Suspect]
     Dosage: 60 MG, DAILY (1/D)
     Dates: start: 20090501, end: 20090501
  3. CYMBALTA [Suspect]
     Dosage: 30 MG, DAILY (1/D)
     Dates: start: 20090501
  4. OMEPRAZOLE [Concomitant]
     Indication: GASTRIC DISORDER
  5. ALPRAZOLAM [Concomitant]
     Dosage: UNK, AS NEEDED

REACTIONS (5)
  - ANOREXIA [None]
  - BLADDER DISORDER [None]
  - BLOOD TEST ABNORMAL [None]
  - CHROMATURIA [None]
  - WEIGHT DECREASED [None]
